FAERS Safety Report 18055649 (Version 1)
Quarter: 2020Q3

REPORT INFORMATION
  Report Type: Spontaneous
  Country: US (occurrence: US)
  Receive Date: 20200722
  Receipt Date: 20200722
  Transmission Date: 20201103
  Serious: No
  Sender: FDA-Public Use
  Company Number: US-ANIPHARMA-2020-US-005028

PATIENT
  Age: 59 Year
  Sex: Male
  Weight: 106.6 kg

DRUGS (3)
  1. TEMOZOLOMIDE CAPSULES [Suspect]
     Active Substance: TEMOZOLOMIDE
     Indication: NEOPLASM MALIGNANT
     Dosage: TAKE 3 CAPSULES AT NIGHT FOR 5 NIGHTS
     Route: 048
     Dates: start: 20200219, end: 20200223
  2. OXYCODONE/APAP [Concomitant]
     Active Substance: ACETAMINOPHEN\OXYCODONE HYDROCHLORIDE
  3. UNSPECIFIED STOOL SOFTNER [Concomitant]

REACTIONS (4)
  - Constipation [Recovered/Resolved]
  - Nausea [Recovered/Resolved]
  - Headache [Not Recovered/Not Resolved]
  - Bone pain [Not Recovered/Not Resolved]

NARRATIVE: CASE EVENT DATE: 202002
